FAERS Safety Report 9861334 (Version 2)
Quarter: 2014Q1

REPORT INFORMATION
  Report Type: Spontaneous
  Country: JP (occurrence: JP)
  Receive Date: 20140202
  Receipt Date: 20140202
  Transmission Date: 20141002
  Serious: No
  Sender: FDA-Public Use
  Company Number: JP-ALLERGAN-1304706US

PATIENT
  Age: 66 Year
  Sex: Male

DRUGS (3)
  1. BOTOX [Suspect]
     Indication: MUSCLE SPASMS
     Dosage: 200 UNITS, SINGLE
     Route: 030
     Dates: start: 20121211, end: 20121211
  2. BOTOX [Suspect]
     Dosage: 200 UNITS, SINGLE
     Route: 030
     Dates: start: 20130326, end: 20130326
  3. BOTOX [Suspect]
     Dosage: UNK, SINGLE
     Route: 030

REACTIONS (1)
  - Blood creatine phosphokinase increased [Recovered/Resolved]
